FAERS Safety Report 19108344 (Version 1)
Quarter: 2021Q2

REPORT INFORMATION
  Report Type: Spontaneous
  Country: US (occurrence: US)
  Receive Date: 20210408
  Receipt Date: 20210408
  Transmission Date: 20210717
  Serious: Yes (Death, Hospitalization)
  Sender: FDA-Public Use
  Company Number: US-FRESENIUS MEDICAL CARE RENAL THERAPIES GROUP-FMC-2104-000443

PATIENT
  Age: 65 Year
  Sex: Male
  Weight: 73 kg

DRUGS (1)
  1. DELFLEX [Suspect]
     Active Substance: CALCIUM CHLORIDE\DEXTROSE\MAGNESIUM CHLORIDE\SODIUM CHLORIDE\SODIUM LACTATE
     Indication: END STAGE RENAL DISEASE
     Dosage: 2200 ML FOR 4 CYCLES WITH NO LAST FILL AND NO DAYTIME EXCHANGE, SINCE AUGUST 2020
     Route: 033

REACTIONS (5)
  - Cardiac arrest [Fatal]
  - Endocarditis bacterial [Fatal]
  - Product dose omission issue [Unknown]
  - Azotaemia [Unknown]
  - Sepsis [Fatal]
